FAERS Safety Report 12177886 (Version 1)
Quarter: 2016Q1

REPORT INFORMATION
  Report Type: Spontaneous
  Country: US (occurrence: None)
  Receive Date: 20160314
  Receipt Date: 20160314
  Transmission Date: 20160526
  Serious: Yes (Life-Threatening)
  Sender: FDA-Public Use
  Company Number: None

PATIENT
  Age: 54 Year
  Sex: Female
  Weight: 111 kg

DRUGS (14)
  1. MELATONIN [Concomitant]
     Active Substance: MELATONIN
  2. SIMVASTATIN. [Concomitant]
     Active Substance: SIMVASTATIN
  3. LOSARTAN. [Concomitant]
     Active Substance: LOSARTAN
  4. AIRBORNE [Suspect]
     Active Substance: HERBALS\MINERALS\VITAMINS
     Indication: IMMUNE SYSTEM DISORDER
     Route: 048
     Dates: start: 20151212, end: 20151218
  5. AUGMENTIN (AMOX/CLAV) [Concomitant]
  6. LANTUS (SOLOSTAR PEN) [Concomitant]
  7. GABAPENTIN. [Concomitant]
     Active Substance: GABAPENTIN
  8. COUMADIN [Concomitant]
     Active Substance: WARFARIN SODIUM
  9. DOCUSATE-SENNA [Concomitant]
  10. LOPERAMIDE [Concomitant]
     Active Substance: LOPERAMIDE
  11. ZINC [Concomitant]
     Active Substance: ZINC\ZINC CHLORIDE
  12. ONDANSETRON [Concomitant]
     Active Substance: ONDANSETRON
  13. FLUOXETINE [Concomitant]
     Active Substance: FLUOXETINE HYDROCHLORIDE
  14. ASPIRIN. [Concomitant]
     Active Substance: ASPIRIN

REACTIONS (4)
  - International normalised ratio increased [None]
  - Inhibitory drug interaction [None]
  - Anticoagulation drug level below therapeutic [None]
  - Infection [None]

NARRATIVE: CASE EVENT DATE: 20151212
